FAERS Safety Report 17704791 (Version 1)
Quarter: 2020Q2

REPORT INFORMATION
  Report Type: Spontaneous
  Country: US (occurrence: US)
  Receive Date: 20200424
  Receipt Date: 20200424
  Transmission Date: 20200714
  Serious: No
  Sender: FDA-Public Use
  Company Number: None

PATIENT
  Age: 77 Year
  Sex: Male
  Weight: 81 kg

DRUGS (3)
  1. GAMUNEX-C [Suspect]
     Active Substance: HUMAN IMMUNOGLOBULIN G
     Indication: CHRONIC INFLAMMATORY DEMYELINATING POLYRADICULONEUROPATHY
     Dosage: ?          OTHER FREQUENCY:DAILY FOR 5 DAYS;?
     Route: 041
     Dates: start: 20200418, end: 20200422
  2. TYLENOL 650MG [Concomitant]
     Dates: start: 20200319, end: 20200422
  3. BENADRYL  50MG [Concomitant]
     Dates: start: 20200319, end: 20200422

REACTIONS (1)
  - Syncope [None]

NARRATIVE: CASE EVENT DATE: 20200422
